FAERS Safety Report 16676787 (Version 2)
Quarter: 2020Q2

REPORT INFORMATION
  Report Type: Spontaneous
  Country: US (occurrence: US)
  Receive Date: 20190807
  Receipt Date: 20200529
  Transmission Date: 20200713
  Serious: Yes (Other)
  Sender: FDA-Public Use
  Company Number: US-GILEAD-2019-0421738

PATIENT
  Sex: Male

DRUGS (1)
  1. TRUVADA [Suspect]
     Active Substance: EMTRICITABINE\TENOFOVIR DISOPROXIL FUMARATE
     Indication: HIV INFECTION
     Dosage: UNK
     Route: 048
     Dates: start: 200906, end: 201808

REACTIONS (10)
  - Osteopenia [Unknown]
  - Anhedonia [Unknown]
  - Anxiety [Unknown]
  - Bone density decreased [Unknown]
  - Multiple fractures [Unknown]
  - Economic problem [Unknown]
  - Tooth loss [Unknown]
  - Emotional distress [Unknown]
  - Tooth fracture [Unknown]
  - Pain [Unknown]
